FAERS Safety Report 7602691-0 (Version None)
Quarter: 2011Q3

REPORT INFORMATION
  Report Type: 
  Country: None (occurrence: None)
  Receive Date: 20110712
  Receipt Date: 20110705
  Transmission Date: 20111222
  Serious: Yes (Death, Hospitalization)
  Sender: FDA-Public Use
  Company Number: JP-CELGENEUS-087-21880-10121758

PATIENT
  Sex: Female

DRUGS (29)
  1. REVLIMID [Suspect]
     Dosage: 10 MILLIGRAM
     Route: 048
     Dates: start: 20101014, end: 20101020
  2. REVLIMID [Suspect]
     Dosage: 5 MILLIGRAM
     Route: 048
     Dates: start: 20101127, end: 20101212
  3. DECADRON [Suspect]
     Indication: MULTIPLE MYELOMA
     Dosage: 8 MILLIGRAM
     Route: 041
     Dates: start: 20100916, end: 20101001
  4. DECADRON [Suspect]
     Dosage: 8 MILLIGRAM
     Route: 041
     Dates: start: 20101014, end: 20101015
  5. MIYA BM [Concomitant]
     Indication: MULTIPLE MYELOMA
     Dosage: 3 GRAM
     Route: 048
     Dates: end: 20110113
  6. GABAPENTIN [Concomitant]
     Indication: MULTIPLE MYELOMA
     Dosage: 600 MILLIGRAM
     Route: 048
     Dates: end: 20110113
  7. CONFATANIN [Concomitant]
     Indication: MULTIPLE MYELOMA
     Dosage: 60 MILLIGRAM
     Route: 048
     Dates: end: 20110113
  8. FUROSEMIDE [Concomitant]
     Indication: MULTIPLE MYELOMA
     Dosage: 20 MILLIGRAM
     Route: 048
     Dates: end: 20110113
  9. FENTANYL [Concomitant]
     Indication: MULTIPLE MYELOMA
     Dosage: 4.2 MG/3 DAYS
     Route: 061
     Dates: end: 20110113
  10. ASPARA POTASSIUM [Concomitant]
     Indication: PROPHYLAXIS
     Dosage: 300 MILLIGRAM
     Route: 048
     Dates: end: 20110113
  11. REVLIMID [Suspect]
     Dosage: 10 MILLIGRAM
     Route: 048
     Dates: start: 20101122, end: 20101126
  12. CABAGIN-U [Concomitant]
     Indication: MULTIPLE MYELOMA
     Dosage: 75 MILLIGRAM
     Route: 048
     Dates: end: 20110113
  13. ETODOLAC [Concomitant]
     Indication: MULTIPLE MYELOMA
     Dosage: 400 MILLIGRAM
     Route: 048
     Dates: end: 20110113
  14. PREDNISOLONE [Concomitant]
     Indication: MULTIPLE MYELOMA
     Dosage: 5 MILLIGRAM
     Route: 048
     Dates: end: 20110113
  15. LANSOPRAZOLE [Concomitant]
     Indication: PROPHYLAXIS
     Dosage: 15 MILLIGRAM
     Route: 048
     Dates: end: 20110113
  16. ITRACONAZOLE [Concomitant]
     Indication: PROPHYLAXIS
     Dosage: 20 MILLIGRAM
     Route: 048
     Dates: start: 20101205, end: 20101211
  17. PROCTOSEDYL [Concomitant]
     Dosage: 2 GRAM
     Route: 061
     Dates: start: 20101203, end: 20101212
  18. ENEMA [Concomitant]
     Route: 065
  19. REVLIMID [Suspect]
     Indication: MULTIPLE MYELOMA
     Dosage: 10 MILLIGRAM
     Route: 048
     Dates: start: 20100809
  20. REVLIMID [Suspect]
     Dosage: 10 MILLIGRAM
     Route: 048
     Dates: start: 20101220, end: 20110104
  21. DECADRON [Suspect]
     Dosage: 1 MILLIGRAM
     Route: 048
     Dates: start: 20101122, end: 20101123
  22. REVLIMID [Suspect]
     Dosage: 10 MILLIGRAM
     Route: 048
     Dates: start: 20100916, end: 20101005
  23. REVLIMID [Suspect]
     Dosage: 5 MILLIGRAM
     Route: 048
     Dates: start: 20101127, end: 20101212
  24. ERYTHROMYCIN [Concomitant]
     Indication: MULTIPLE MYELOMA
     Dosage: 600 MILLIGRAM
     Route: 048
     Dates: end: 20110113
  25. ALPRAZOLAM [Concomitant]
     Indication: MULTIPLE MYELOMA
     Dosage: .4 MILLIGRAM
     Route: 048
     Dates: end: 20110113
  26. LUPRAC [Concomitant]
     Indication: MULTIPLE MYELOMA
     Dosage: 4 MILLIGRAM
     Route: 048
     Dates: end: 20110113
  27. ETIZOLAM [Concomitant]
     Indication: MULTIPLE MYELOMA
     Dosage: .5 MILLIGRAM
     Route: 048
     Dates: end: 20110113
  28. MECOBALAMIN [Concomitant]
     Dosage: 1.5 GRAM
     Route: 048
     Dates: end: 20110113
  29. ZOLPIDEM [Concomitant]
     Indication: MULTIPLE MYELOMA
     Dosage: 5 MILLIGRAM
     Route: 048
     Dates: end: 20110113

REACTIONS (10)
  - HYPOAESTHESIA [None]
  - HEADACHE [None]
  - NAUSEA [None]
  - C-REACTIVE PROTEIN INCREASED [None]
  - PNEUMONIA [None]
  - DIVERTICULITIS [None]
  - HERPES ZOSTER [None]
  - LEUKOPENIA [None]
  - THROMBOCYTOPENIA [None]
  - MULTIPLE MYELOMA [None]
